FAERS Safety Report 4488176-1 (Version None)
Quarter: 2004Q4

REPORT INFORMATION
  Report Type: 
  Country: None (occurrence: None)
  Receive Date: 20041028
  Receipt Date: 20041020
  Transmission Date: 20050328
  Serious: Yes (Death, Other)
  Sender: FDA-Public Use
  Company Number: US-JNJFOC-20041006093

PATIENT
  Age: 82 Year
  Sex: Male
  Weight: 72 kg

DRUGS (3)
  1. NATRECOR [Suspect]
     Dosage: CONTINUOUS INFUSION
     Route: 042
  2. NATRECOR [Suspect]
     Dosage: CONTINUOUS INFUSION
     Route: 042
  3. NATRECOR [Suspect]
     Dosage: BOLUS
     Route: 042

REACTIONS (5)
  - GENERAL PHYSICAL HEALTH DETERIORATION [None]
  - HAEMODIALYSIS [None]
  - HYPOTENSION [None]
  - MEDICATION ERROR [None]
  - OVERDOSE [None]
